FAERS Safety Report 7206277-1 (Version None)
Quarter: 2011Q1

REPORT INFORMATION
  Report Type: 
  Country: None (occurrence: None)
  Receive Date: 20110103
  Receipt Date: 20101223
  Transmission Date: 20110831
  Serious: Yes (Hospitalization)
  Sender: FDA-Public Use
  Company Number: PHHY2010US88230

PATIENT
  Sex: Female

DRUGS (2)
  1. NEORAL [Suspect]
     Dosage: 25 MG, BID
     Route: 048
     Dates: start: 20070101
  2. MYFORTIC [Suspect]
     Indication: TRANSPLANT
     Dosage: 360 MG, BID
     Route: 048
     Dates: start: 20070101

REACTIONS (2)
  - HERNIA [None]
  - SURGERY [None]
